FAERS Safety Report 6535601-8 (Version None)
Quarter: 2010Q1

REPORT INFORMATION
  Report Type: 
  Country: None (occurrence: None)
  Receive Date: 20100113
  Receipt Date: 20100106
  Transmission Date: 20100710
  Serious: Yes (Death)
  Sender: FDA-Public Use
  Company Number: US-AMGEN-QUU360073

PATIENT
  Sex: Male

DRUGS (7)
  1. NEUPOGEN [Suspect]
     Indication: CHEMOTHERAPY
     Dates: start: 20080425, end: 20090527
  2. NEULASTA [Suspect]
     Indication: CHEMOTHERAPY
     Dates: start: 20070808, end: 20071120
  3. ARANESP [Suspect]
     Indication: ANAEMIA OF MALIGNANT DISEASE
     Dates: start: 20080624, end: 20090513
  4. AVASTIN [Concomitant]
  5. PARAPLATIN [Concomitant]
  6. TAXOL [Concomitant]
  7. ALIMTA [Concomitant]

REACTIONS (1)
  - LUNG NEOPLASM MALIGNANT [None]
